FAERS Safety Report 11602878 (Version 1)
Quarter: 2015Q4

REPORT INFORMATION
  Report Type: Spontaneous
  Country: US (occurrence: US)
  Receive Date: 20151006
  Receipt Date: 20151006
  Transmission Date: 20160304
  Serious: No
  Sender: FDA-Public Use
  Company Number: US-AMGEN-USASP2015071567

PATIENT
  Age: 66 Year
  Sex: Female
  Weight: 58.5 kg

DRUGS (1)
  1. PROLIA [Suspect]
     Active Substance: DENOSUMAB
     Indication: OSTEOPOROSIS
     Dosage: 60 MG, UNK
     Route: 030
     Dates: start: 20150623

REACTIONS (7)
  - Abdominal pain [Not Recovered/Not Resolved]
  - Incorrect route of drug administration [Unknown]
  - Nausea [Not Recovered/Not Resolved]
  - Pain in extremity [Unknown]
  - Fatigue [Unknown]
  - Vomiting [Not Recovered/Not Resolved]
  - Urinary incontinence [Recovered/Resolved]

NARRATIVE: CASE EVENT DATE: 20150623
